FAERS Safety Report 7386015-2 (Version None)
Quarter: 2011Q1

REPORT INFORMATION
  Report Type: 
  Country: None (occurrence: None)
  Receive Date: 20110329
  Receipt Date: 20110329
  Transmission Date: 20110831
  Serious: No
  Sender: FDA-Public Use
  Company Number: None

PATIENT
  Age: 11 Month
  Sex: Female
  Weight: 9.9 kg

DRUGS (1)
  1. PEDIACARE-ACETAMINOPHEN- 80MG/0.8ML [Suspect]

REACTIONS (4)
  - CIRCUMSTANCE OR INFORMATION CAPABLE OF LEADING TO MEDICATION ERROR [None]
  - MEDICATION ERROR [None]
  - PRODUCT NAME CONFUSION [None]
  - PRODUCT LABEL ISSUE [None]
